FAERS Safety Report 8780441 (Version 1)
Quarter: 2012Q4

REPORT INFORMATION
  Report Type: Spontaneous
  Country: US (occurrence: None)
  Receive Date: 20120905
  Receipt Date: 20120905
  Transmission Date: 20130627
  Serious: Yes (Life-Threatening, Disabling, Other)
  Sender: FDA-Public Use
  Company Number: None

PATIENT
  Age: 74 Year
  Sex: Male
  Weight: 76.66 kg

DRUGS (1)
  1. TRAZODONE [Suspect]
     Dates: start: 20120731, end: 20120831

REACTIONS (4)
  - Pharyngeal oedema [None]
  - Dysphonia [None]
  - Retching [None]
  - Adverse drug reaction [None]
